FAERS Safety Report 9246548 (Version 1)
Quarter: 2013Q2

REPORT INFORMATION
  Report Type: Spontaneous
  Country: US (occurrence: US)
  Receive Date: 20130422
  Receipt Date: 20130422
  Transmission Date: 20140414
  Serious: No
  Sender: FDA-Public Use
  Company Number: US-ABBOTT-12P-163-1023386-00

PATIENT
  Age: 10 Year
  Sex: Female
  Weight: 37 kg

DRUGS (1)
  1. LUPRON DEPOT-PED [Suspect]
     Indication: PRECOCIOUS PUBERTY
     Dosage: 1 MONTH FORMULATION
     Dates: start: 20121211, end: 20121211

REACTIONS (1)
  - Drug dispensing error [Unknown]
